FAERS Safety Report 5931295-0 (Version None)
Quarter: 2008Q4

REPORT INFORMATION
  Report Type: 
  Country: None (occurrence: None)
  Receive Date: 20081024
  Receipt Date: 20081024
  Transmission Date: 20090506
  Serious: Yes (Hospitalization)
  Sender: FDA-Public Use
  Company Number: None

PATIENT
  Sex: Male
  Weight: 95.7 kg

DRUGS (1)
  1. RAPAMUNE [Suspect]
     Dosage: 99.4 MG

REACTIONS (1)
  - THROMBOPHLEBITIS SUPERFICIAL [None]
